FAERS Safety Report 4641711-2 (Version None)
Quarter: 2005Q2

REPORT INFORMATION
  Report Type: 
  Country: None (occurrence: None)
  Receive Date: 20050421
  Receipt Date: 20050406
  Transmission Date: 20051028
  Serious: No
  Sender: FDA-Public Use
  Company Number: ABILB-05-0217

PATIENT
  Age: 46 Year
  Sex: Female

DRUGS (5)
  1. ABRAXANE [Suspect]
     Indication: BREAST CANCER METASTATIC
     Dosage: 1 DOSE PRIOR TO 1ST EVENT AND 2 DOSES PRIOR TO 2ND EVENT (260 MG/M2, EVERY 3 WEEKS), INTRAVENOUS DRI
     Route: 041
     Dates: start: 20050225
  2. LEXAPRO [Concomitant]
  3. ADVIL [Concomitant]
  4. MORPHINE SULFATE [Concomitant]
  5. NEULASTIN (PEGFILGRASTIM) [Concomitant]

REACTIONS (3)
  - ARTHRALGIA [None]
  - BONE PAIN [None]
  - MYALGIA [None]
